FAERS Safety Report 13657219 (Version 5)
Quarter: 2017Q3

REPORT INFORMATION
  Report Type: Spontaneous
  Country: IN (occurrence: IN)
  Receive Date: 20170615
  Receipt Date: 20170710
  Transmission Date: 20171127
  Serious: Yes (Death)
  Sender: FDA-Public Use
  Company Number: IN-JNJFOC-20170610747

PATIENT
  Age: 72 Year
  Sex: Male

DRUGS (9)
  1. RANTAC [Concomitant]
     Active Substance: RANITIDINE HYDROCHLORIDE
     Route: 065
  2. ASPIRIN. [Concomitant]
     Active Substance: ASPIRIN
     Route: 065
  3. IMBRUVICA [Suspect]
     Active Substance: IBRUTINIB
     Indication: CHRONIC LYMPHOCYTIC LEUKAEMIA
     Route: 048
     Dates: start: 20160728
  4. SHELCAL [Concomitant]
     Route: 065
  5. IMBRUVICA [Suspect]
     Active Substance: IBRUTINIB
     Indication: CHRONIC LYMPHOCYTIC LEUKAEMIA
     Route: 048
     Dates: start: 20160704
  6. WYSOLONE [Concomitant]
     Active Substance: PREDNISOLONE
     Dosage: 20 MG FOR 5 DAYS
     Route: 065
  7. WYSOLONE [Concomitant]
     Active Substance: PREDNISOLONE
     Dosage: 10 MG FOR 5 DAYS
     Route: 065
  8. WYSOLONE [Concomitant]
     Active Substance: PREDNISOLONE
     Dosage: 30 MG FOR 10 DAYS
     Route: 065
  9. PREGABALIN. [Concomitant]
     Active Substance: PREGABALIN
     Route: 065
     Dates: start: 20160704

REACTIONS (3)
  - Death [Fatal]
  - Inappropriate schedule of drug administration [Unknown]
  - Off label use [Unknown]

NARRATIVE: CASE EVENT DATE: 20160728
